FAERS Safety Report 13427992 (Version 1)
Quarter: 2017Q2

REPORT INFORMATION
  Report Type: Spontaneous
  Country: GB (occurrence: GB)
  Receive Date: 20170411
  Receipt Date: 20170411
  Transmission Date: 20170830
  Serious: Yes (Hospitalization, Other)
  Sender: FDA-Public Use
  Company Number: GB-PFIZER INC-2017148675

PATIENT
  Age: 74 Year
  Sex: Male
  Weight: 80 kg

DRUGS (15)
  1. DEPO-MEDRONE [Concomitant]
     Active Substance: METHYLPREDNISOLONE
     Dosage: STTA; VIALS
     Dates: start: 20170323
  2. LANSOPRAZOLE. [Concomitant]
     Active Substance: LANSOPRAZOLE
     Dosage: 1 OR 2 CAPSULE DAILY
     Dates: start: 20170302
  3. POLYFAX [Concomitant]
     Dosage: 2-4 TIMES DAILY
     Dates: start: 20170302
  4. XARELTO [Concomitant]
     Active Substance: RIVAROXABAN
     Dosage: 20 MG, 1X/DAY
     Dates: start: 20161221
  5. LORATADINE. [Concomitant]
     Active Substance: LORATADINE
     Dosage: TAKE ONE OR ONE AND A HALF DAILY WHEN REQUIRED
     Dates: start: 20161108
  6. TAMSULOSIN [Concomitant]
     Active Substance: TAMSULOSIN
     Dosage: IN THE MORNING; MODIFIED-RELEASE CAPSULES
     Dates: start: 20161222
  7. LEVITRA [Concomitant]
     Active Substance: VARDENAFIL HYDROCHLORIDE TRIHYDRATE
     Dosage: PRIOR TO SEXUAL ACTIVITY
     Dates: start: 20161108
  8. BISOPROLOL [Concomitant]
     Active Substance: BISOPROLOL
     Dosage: 1.25 MG, 1X/DAY
     Dates: start: 20170110
  9. GAVISCON ADVANCE [Concomitant]
     Active Substance: POTASSIUM BICARBONATE\SODIUM ALGINATE
     Dosage: 15 ML, 4X/DAY
     Route: 048
     Dates: start: 20161221
  10. PARACETAMOL [Concomitant]
     Active Substance: ACETAMINOPHEN
     Dosage: 2 DF, 4X/DAY
     Dates: start: 20161222
  11. ELOCON [Concomitant]
     Active Substance: MOMETASONE FUROATE
     Dosage: APPLY THINLY
     Dates: start: 20170208
  12. LACTULOSE. [Concomitant]
     Active Substance: LACTULOSE
     Dosage: TWO 5ML SPOONFULS; 3.1-3.7G/5ML ORAL SOLUTION
     Route: 048
     Dates: start: 20161222
  13. OMEPRAZOLE. [Concomitant]
     Active Substance: OMEPRAZOLE
     Dosage: 20 MG, 1X/DAY
     Dates: start: 20161128
  14. GABAPENTIN. [Suspect]
     Active Substance: GABAPENTIN
     Dosage: 300 MG, UNK
     Route: 048
  15. RANITIDINE. [Concomitant]
     Active Substance: RANITIDINE
     Dosage: 150 MG, 2X/DAY
     Dates: start: 20170126

REACTIONS (2)
  - Hyponatraemia [Recovered/Resolved]
  - Malaise [Unknown]

NARRATIVE: CASE EVENT DATE: 20161215
